FAERS Safety Report 9841676 (Version 1)
Quarter: 2013Q4

REPORT INFORMATION
  Report Type: Spontaneous
  Country: US (occurrence: None)
  Receive Date: 20131211
  Receipt Date: 20131211
  Transmission Date: 20140711
  Serious: Yes (Other)
  Sender: FDA-Public Use
  Company Number: ALL1-2012-01769

PATIENT
  Age: 6 Year
  Sex: Female

DRUGS (1)
  1. VYVANSE (LISDEXAMFETAMINE DIMESYLATE) CAPSULE [Suspect]
     Indication: PRODUCT USED FOR UNKNOWN INDICATION
     Dosage: 1X/DAY, QD (1/2 OF CONTENTS OF 20 MG CAPSULE)
     Route: 048
     Dates: start: 201110

REACTIONS (6)
  - Hallucination, auditory [None]
  - Impulsive behaviour [None]
  - Antisocial behaviour [None]
  - Abnormal loss of weight [None]
  - Tic [None]
  - Drug prescribing error [None]
